FAERS Safety Report 8091657-5 (Version None)
Quarter: 2012Q1

REPORT INFORMATION
  Report Type: 
  Country: None (occurrence: None)
  Receive Date: 20120129
  Receipt Date: 20110909
  Transmission Date: 20120608
  Serious: No
  Sender: FDA-Public Use
  Company Number: US-ABBOTT-11P-163-0853910-00

PATIENT
  Sex: Female

DRUGS (2)
  1. HUMIRA [Suspect]
     Indication: CROHN'S DISEASE
     Route: 058
     Dates: start: 20110301, end: 20110601
  2. HUMIRA [Suspect]
     Route: 058
     Dates: start: 20110601

REACTIONS (4)
  - FREQUENT BOWEL MOVEMENTS [None]
  - PAPULE [None]
  - DEFAECATION URGENCY [None]
  - RASH GENERALISED [None]
